FAERS Safety Report 22793068 (Version 3)
Quarter: 2023Q4

REPORT INFORMATION
  Report Type: Report from Study
  Country: GB (occurrence: GB)
  Receive Date: 20230807
  Receipt Date: 20231226
  Transmission Date: 20240110
  Serious: No
  Sender: FDA-Public Use
  Company Number: GB-SANDOZ-SDZ2023GB009779

PATIENT
  Sex: Female

DRUGS (2)
  1. OMNITROPE [Suspect]
     Active Substance: SOMATROPIN
     Indication: Product used for unknown indication
     Dosage: 0.20 MG, QD
     Route: 058
     Dates: start: 20230320
  2. OMNITROPE [Suspect]
     Active Substance: SOMATROPIN
     Dosage: 0.20 MG, QD
     Route: 058
     Dates: start: 20231220

REACTIONS (2)
  - Injection site haemorrhage [Unknown]
  - Wrong technique in device usage process [Unknown]
